FAERS Safety Report 21354854 (Version 2)
Quarter: 2022Q4

REPORT INFORMATION
  Report Type: Report from Study
  Country: US (occurrence: US)
  Receive Date: 20220920
  Receipt Date: 20221012
  Transmission Date: 20230113
  Serious: Yes (Hospitalization, Other)
  Sender: FDA-Public Use
  Company Number: US-BAYER-2022A085049

PATIENT
  Age: 59 Year
  Sex: Female
  Weight: 96.599 kg

DRUGS (18)
  1. ADEMPAS [Suspect]
     Active Substance: RIOCIGUAT
     Indication: Pulmonary arterial hypertension
     Dosage: 1 MG, TID
     Route: 048
     Dates: start: 20220505
  2. ADEMPAS [Suspect]
     Active Substance: RIOCIGUAT
     Indication: Product used for unknown indication
     Dosage: 2 MG, TID
     Route: 048
     Dates: start: 2022
  3. ADEMPAS [Suspect]
     Active Substance: RIOCIGUAT
     Indication: Pulmonary arterial hypertension
     Dosage: 2.5 MG, TID
     Route: 048
     Dates: start: 2022
  4. ADEMPAS [Suspect]
     Active Substance: RIOCIGUAT
     Indication: Pulmonary arterial hypertension
     Dosage: 2.5 MG, TID
     Route: 048
  5. ADEMPAS [Suspect]
     Active Substance: RIOCIGUAT
     Indication: Pulmonary arterial hypertension
     Dosage: UNK
  6. ADEMPAS [Suspect]
     Active Substance: RIOCIGUAT
     Indication: Pulmonary arterial hypertension
     Dosage: 2.5 MG, TID
     Route: 048
  7. ADEMPAS [Suspect]
     Active Substance: RIOCIGUAT
     Indication: Pulmonary arterial hypertension
     Dosage: 2.5 MG, TID
     Route: 048
  8. REMODULIN [Suspect]
     Active Substance: TREPROSTINIL
     Indication: Pulmonary arterial hypertension
     Dosage: 0.013 ?G/KG
     Route: 058
     Dates: start: 20220218, end: 20220813
  9. REMODULIN [Suspect]
     Active Substance: TREPROSTINIL
     Indication: Pulmonary arterial hypertension
     Dosage: 5.0 MG/ML
     Dates: start: 20220218, end: 20220813
  10. REMODULIN [Suspect]
     Active Substance: TREPROSTINIL
     Indication: Pulmonary arterial hypertension
     Dosage: 0.021 ?G/KG
     Dates: start: 2022
  11. REMODULIN [Suspect]
     Active Substance: TREPROSTINIL
     Indication: Pulmonary arterial hypertension
     Dosage: 0.025 ?G/KG
     Dates: start: 2022
  12. XARELTO [Concomitant]
     Active Substance: RIVAROXABAN
     Dosage: UNK
  13. SILDENAFIL [Concomitant]
     Active Substance: SILDENAFIL
     Indication: Product used for unknown indication
     Dosage: UNK
  14. UPTRAVI [Suspect]
     Active Substance: SELEXIPAG
     Indication: Pulmonary arterial hypertension
     Dosage: UNK
  15. UPTRAVI [Suspect]
     Active Substance: SELEXIPAG
     Indication: Pulmonary arterial hypertension
     Dosage: 1000 MCG QD
  16. UPTRAVI [Suspect]
     Active Substance: SELEXIPAG
     Indication: Pulmonary arterial hypertension
     Dosage: UNK
     Dates: start: 2022
  17. OXYGEN [Concomitant]
     Active Substance: OXYGEN
  18. AMBRISENTAN [Concomitant]
     Active Substance: AMBRISENTAN

REACTIONS (51)
  - Syncope [None]
  - Oxygen saturation decreased [Recovering/Resolving]
  - Pulmonary arterial hypertension [Not Recovered/Not Resolved]
  - Abdominal hernia [None]
  - Dyspnoea at rest [Not Recovered/Not Resolved]
  - Fatigue [Not Recovered/Not Resolved]
  - Hypersomnia [Not Recovered/Not Resolved]
  - Fear of death [Recovering/Resolving]
  - Asthenia [Not Recovered/Not Resolved]
  - Gait inability [None]
  - Palpitations [None]
  - Heart rate increased [None]
  - Headache [Not Recovered/Not Resolved]
  - Diarrhoea [Unknown]
  - Muscular weakness [None]
  - Infusion site haemorrhage [None]
  - Burning sensation [Not Recovered/Not Resolved]
  - Anxiety [Not Recovered/Not Resolved]
  - Insomnia [Not Recovered/Not Resolved]
  - Oedema peripheral [Not Recovered/Not Resolved]
  - Localised oedema [Not Recovered/Not Resolved]
  - Dyspnoea [Not Recovered/Not Resolved]
  - Thyroid disorder [None]
  - Oedema [None]
  - Constipation [None]
  - Joint swelling [Unknown]
  - Abdominal distension [None]
  - Peripheral swelling [None]
  - Headache [Not Recovered/Not Resolved]
  - Malaise [None]
  - Pain [None]
  - Muscular weakness [None]
  - Cough [None]
  - Dyspnoea [Not Recovered/Not Resolved]
  - Weight increased [None]
  - Infusion site pain [Not Recovered/Not Resolved]
  - Infusion site erythema [None]
  - Paraesthesia [None]
  - Lung disorder [None]
  - Treatment noncompliance [None]
  - Condition aggravated [None]
  - General physical health deterioration [None]
  - Drug intolerance [None]
  - General physical health deterioration [None]
  - Discomfort [None]
  - Pruritus [None]
  - Fear [None]
  - Dyspnoea exertional [None]
  - Dizziness [None]
  - Muscle spasms [None]
  - Asthenia [None]

NARRATIVE: CASE EVENT DATE: 20220101
